FAERS Safety Report 8473188-3 (Version None)
Quarter: 2012Q2

REPORT INFORMATION
  Report Type: 
  Country: None (occurrence: None)
  Receive Date: 20120627
  Receipt Date: 20120622
  Transmission Date: 20120825
  Serious: Yes (Other)
  Sender: FDA-Public Use
  Company Number: US-PFIZER INC-2012092899

PATIENT
  Sex: Female
  Weight: 92 kg

DRUGS (2)
  1. LYRICA [Suspect]
     Indication: TRIGEMINAL NEURALGIA
     Dosage: 50 MG, 1X/DAY
     Route: 048
     Dates: start: 20120301, end: 20120412
  2. LYRICA [Suspect]
     Dosage: 100 MG, 1X/DAY
     Route: 048
     Dates: start: 20120412, end: 20120401

REACTIONS (16)
  - ACTIVITIES OF DAILY LIVING IMPAIRED [None]
  - DRUG EFFECT DECREASED [None]
  - ORAL MUCOSAL ERYTHEMA [None]
  - GAIT DISTURBANCE [None]
  - RASH GENERALISED [None]
  - BODY TEMPERATURE INCREASED [None]
  - FEELING ABNORMAL [None]
  - STOMATITIS [None]
  - CHEST DISCOMFORT [None]
  - DYSSTASIA [None]
  - ERYTHEMA [None]
  - MUSCLE DISORDER [None]
  - CHILLS [None]
  - TREMOR [None]
  - ORAL PAIN [None]
  - MYALGIA [None]
